FAERS Safety Report 4908005-9 (Version None)
Quarter: 2006Q1

REPORT INFORMATION
  Report Type: 
  Country: None (occurrence: None)
  Receive Date: 20060210
  Receipt Date: 20060206
  Transmission Date: 20060701
  Serious: Yes (Hospitalization)
  Sender: FDA-Public Use
  Company Number: S2006US01515

PATIENT
  Age: 71 Year
  Sex: Female

DRUGS (1)
  1. IMITREX [Suspect]
     Indication: MIGRAINE
     Dosage: 100MG AS REQUIRED
     Route: 048

REACTIONS (6)
  - ABDOMINAL PAIN UPPER [None]
  - BODY TEMPERATURE DECREASED [None]
  - CELLULITIS [None]
  - DRUG INEFFECTIVE [None]
  - SEPSIS [None]
  - VOMITING [None]
